FAERS Safety Report 5388871-6 (Version None)
Quarter: 2007Q3

REPORT INFORMATION
  Report Type: 
  Country: None (occurrence: None)
  Receive Date: 20070713
  Receipt Date: 20060501
  Transmission Date: 20080115
  Serious: Yes (Other)
  Sender: FDA-Public Use
  Company Number: 2279 / 2006S1003319

PATIENT
  Sex: Female

DRUGS (1)
  1. AMNESTEEM [Suspect]
     Dosage: 40 MG PO
     Route: 048
     Dates: start: 20051123, end: 20060323

REACTIONS (1)
  - NO ADVERSE REACTION [None]
